FAERS Safety Report 6518980-7 (Version None)
Quarter: 2009Q4

REPORT INFORMATION
  Report Type: 
  Country: None (occurrence: None)
  Receive Date: 20091228
  Receipt Date: 20091217
  Transmission Date: 20100525
  Serious: Yes (Death, Hospitalization)
  Sender: FDA-Public Use
  Company Number: KR-PFIZER INC-2009312248

PATIENT
  Age: 74 Year
  Sex: Female

DRUGS (1)
  1. METHYLPREDNISOLONE AND METHYLPREDNISOLONE ACETATE AND METHYLPREDNISOLO [Suspect]
     Indication: ORGANISING PNEUMONIA
     Dosage: 125 MG/DAY

REACTIONS (1)
  - PNEUMONIA [None]
